FAERS Safety Report 18429597 (Version 2)
Quarter: 2020Q4

REPORT INFORMATION
  Report Type: Other
  Country: IT (occurrence: IT)
  Receive Date: 20201027
  Receipt Date: 20201104
  Transmission Date: 20210114
  Serious: Yes (Death)
  Sender: FDA-Public Use
  Company Number: IT-ROCHE-2701936

PATIENT
  Age: 67 Year
  Sex: Female

DRUGS (5)
  1. TRASTUZUMAB. [Suspect]
     Active Substance: TRASTUZUMAB
     Indication: PAGET^S DISEASE OF THE VULVA
     Route: 041
     Dates: start: 201806
  2. TRASTUZUMAB. [Suspect]
     Active Substance: TRASTUZUMAB
     Route: 041
     Dates: start: 201903
  3. CARBOPLATIN. [Concomitant]
     Active Substance: CARBOPLATIN
  4. TRASTUZUMAB. [Suspect]
     Active Substance: TRASTUZUMAB
     Route: 041
     Dates: start: 201811
  5. PACLITAXEL. [Suspect]
     Active Substance: PACLITAXEL
     Indication: PAGET^S DISEASE OF THE VULVA
     Route: 065
     Dates: start: 201806

REACTIONS (8)
  - Anaemia [Unknown]
  - Nausea [Unknown]
  - Neurotoxicity [Unknown]
  - Off label use [Unknown]
  - Alopecia [Unknown]
  - Fatigue [Unknown]
  - Constipation [Unknown]
  - Intentional product use issue [Unknown]

NARRATIVE: CASE EVENT DATE: 201806
